FAERS Safety Report 6656780-8 (Version None)
Quarter: 2010Q1

REPORT INFORMATION
  Report Type: 
  Country: None (occurrence: None)
  Receive Date: 20100329
  Receipt Date: 20100323
  Transmission Date: 20100710
  Serious: Yes (Other)
  Sender: FDA-Public Use
  Company Number: JP-MERCK-1003USA02209

PATIENT
  Age: 60 Year
  Sex: Male

DRUGS (4)
  1. TIMOPTOL-XE [Suspect]
     Indication: OPEN ANGLE GLAUCOMA
     Dosage: LEFT EYES
     Route: 047
     Dates: start: 20100119
  2. TIMOPTOL-XE [Suspect]
     Dosage: RIGHT EYES
     Route: 047
     Dates: start: 20100119, end: 20100226
  3. XALATAN [Suspect]
     Indication: OPEN ANGLE GLAUCOMA
     Dosage: LEFT EYES
     Route: 047
     Dates: start: 20100119
  4. XALATAN [Suspect]
     Dosage: RIGHT EYES
     Route: 047
     Dates: start: 20100119, end: 20100226

REACTIONS (1)
  - ULCERATIVE KERATITIS [None]
